FAERS Safety Report 5744164-6 (Version None)
Quarter: 2008Q2

REPORT INFORMATION
  Report Type: 
  Country: None (occurrence: None)
  Receive Date: 20080516
  Receipt Date: 20080505
  Transmission Date: 20081010
  Serious: Yes (Other)
  Sender: FDA-Public Use
  Company Number: 2008AL003344

PATIENT
  Age: 75 Year
  Sex: Female

DRUGS (4)
  1. DIGOXIN [Suspect]
     Dates: start: 20040101
  2. LANOXIN [Concomitant]
  3. DETROL [Concomitant]
  4. COUMADIN [Concomitant]

REACTIONS (6)
  - ATRIAL FIBRILLATION [None]
  - DIZZINESS [None]
  - DRUG TOXICITY [None]
  - MEMORY IMPAIRMENT [None]
  - POLLAKIURIA [None]
  - VISUAL DISTURBANCE [None]
